FAERS Safety Report 5776752-5 (Version None)
Quarter: 2008Q2

REPORT INFORMATION
  Report Type: 
  Country: None (occurrence: None)
  Receive Date: 20080618
  Receipt Date: 20080610
  Transmission Date: 20081010
  Serious: Yes (Life-Threatening, Hospitalization)
  Sender: FDA-Public Use
  Company Number: NL-TEVA-172973ISR

PATIENT
  Sex: Male
  Weight: 68 kg

DRUGS (9)
  1. METHOTREXATE [Suspect]
     Indication: RHEUMATOID ARTHRITIS
     Dates: start: 19980901, end: 20080515
  2. ETANERCEPT [Suspect]
     Indication: RHEUMATOID ARTHRITIS
     Dates: start: 20000727, end: 20080515
  3. BISOPROLOL FUMARATE [Concomitant]
     Dates: start: 20020101
  4. DIOVAN HCT [Concomitant]
     Dosage: 160/12.5MG
     Dates: start: 20040101
  5. INEGY [Concomitant]
     Dosage: 10/20MG
     Dates: start: 20070101
  6. BISOPROLOL FUMARATE [Concomitant]
     Dates: start: 20000101
  7. AMIODARONE HCL [Concomitant]
     Dates: start: 20000101
  8. AMLODIPINE [Concomitant]
     Dates: start: 20040101
  9. FOLIC ACID [Concomitant]
     Dates: start: 19980901, end: 20080515

REACTIONS (1)
  - NON-SMALL CELL LUNG CANCER STAGE IV [None]
